FAERS Safety Report 7608440-4 (Version None)
Quarter: 2011Q3

REPORT INFORMATION
  Report Type: 
  Country: None (occurrence: None)
  Receive Date: 20110714
  Receipt Date: 20110711
  Transmission Date: 20111222
  Serious: Yes (Death)
  Sender: FDA-Public Use
  Company Number: US-GILEAD-2011-0041353

PATIENT
  Sex: Male

DRUGS (3)
  1. LETAIRIS [Suspect]
     Indication: PULMONARY HYPERTENSION
     Route: 048
     Dates: start: 20110628, end: 20110702
  2. LASIX [Concomitant]
  3. ADCIRCA [Concomitant]

REACTIONS (3)
  - DEATH [None]
  - DYSPNOEA [None]
  - FLUID RETENTION [None]
